FAERS Safety Report 21059455 (Version 1)
Quarter: 2022Q3

REPORT INFORMATION
  Report Type: Spontaneous
  Country: PL (occurrence: PL)
  Receive Date: 20220708
  Receipt Date: 20220708
  Transmission Date: 20221026
  Serious: Yes (Other)
  Sender: FDA-Public Use
  Company Number: PL-002147023-NVSC2022PL145195

PATIENT
  Sex: Male

DRUGS (4)
  1. METHOTREXATE [Suspect]
     Active Substance: METHOTREXATE
     Indication: Graft versus host disease
     Dosage: 7.5 MILLIGRAM, QW (7.5 MG, QW)
     Route: 065
  2. METHOTREXATE [Suspect]
     Active Substance: METHOTREXATE
     Dosage: UNK
     Route: 065
     Dates: start: 202009
  3. RUXOLITINIB [Suspect]
     Active Substance: RUXOLITINIB
     Indication: Graft versus host disease
     Dosage: 5 MILLIGRAM (5 MG (2 X 5 MG))
     Route: 065
     Dates: start: 202102
  4. POSACONAZOLE [Suspect]
     Active Substance: POSACONAZOLE
     Indication: Graft versus host disease
     Dosage: UNK
     Route: 065

REACTIONS (12)
  - Condition aggravated [Recovering/Resolving]
  - Graft versus host disease [Recovering/Resolving]
  - Dry eye [Unknown]
  - Osteonecrosis [Unknown]
  - Hepatotoxicity [Unknown]
  - COVID-19 [Unknown]
  - C-reactive protein increased [Recovering/Resolving]
  - Cough [Recovering/Resolving]
  - Infection [Unknown]
  - Dyspnoea [Recovering/Resolving]
  - Parainfluenzae virus infection [Recovering/Resolving]
  - Product use in unapproved indication [Unknown]

NARRATIVE: CASE EVENT DATE: 20201001
